FAERS Safety Report 18538079 (Version 1)
Quarter: 2020Q4

REPORT INFORMATION
  Report Type: Spontaneous
  Country: US (occurrence: US)
  Receive Date: 20201123
  Receipt Date: 20201123
  Transmission Date: 20210114
  Serious: Yes (Hospitalization)
  Sender: FDA-Public Use
  Company Number: US-LUNDBECK-DKLU3024199

PATIENT
  Age: 86 Year
  Sex: Male
  Weight: 65 kg

DRUGS (2)
  1. NORTHERA [Suspect]
     Active Substance: DROXIDOPA
     Indication: ORTHOSTATIC HYPOTENSION
     Dosage: IF SUPINE BP MORE THAN 180, HOLD AND CALL THE DOCTOR
     Route: 048
  2. RANEXA [Concomitant]
     Active Substance: RANOLAZINE
     Indication: PRODUCT USED FOR UNKNOWN INDICATION
     Dosage: 12 HOUR EXTENDED RELEASE
     Route: 065

REACTIONS (1)
  - Hypertension [Unknown]
